FAERS Safety Report 23309631 (Version 2)
Quarter: 2024Q1

REPORT INFORMATION
  Report Type: Spontaneous
  Country: US (occurrence: US)
  Receive Date: 20231218
  Receipt Date: 20240206
  Transmission Date: 20240410
  Serious: No
  Sender: FDA-Public Use
  Company Number: US-Merz Pharmaceuticals GmbH-23-03634

PATIENT
  Age: 55 Year
  Sex: Female
  Weight: 68.03 kg

DRUGS (1)
  1. XEOMIN [Suspect]
     Active Substance: INCOBOTULINUMTOXINA
     Indication: Product used for unknown indication

REACTIONS (5)
  - Injection site induration [Recovering/Resolving]
  - Pain [Recovering/Resolving]
  - Injection site pruritus [Recovering/Resolving]
  - Injection site erythema [Recovering/Resolving]
  - Injection site oedema [Recovering/Resolving]
